FAERS Safety Report 7438891-2 (Version None)
Quarter: 2011Q2

REPORT INFORMATION
  Report Type: 
  Country: None (occurrence: None)
  Receive Date: 20110426
  Receipt Date: 20091218
  Transmission Date: 20111010
  Serious: Yes (Other)
  Sender: FDA-Public Use
  Company Number: DE-GENENTECH-316905

PATIENT
  Age: 84 Year
  Sex: Female

DRUGS (1)
  1. LUCENTIS [Suspect]
     Indication: MACULAR DEGENERATION
     Dosage: UNK
     Route: 031
     Dates: start: 20090814

REACTIONS (6)
  - BREAST CANCER [None]
  - NEOPLASM MALIGNANT [None]
  - INFLUENZA [None]
  - GAIT DISTURBANCE [None]
  - BACK DISORDER [None]
  - DEPRESSION [None]
